FAERS Safety Report 6821571-1 (Version None)
Quarter: 2010Q3

REPORT INFORMATION
  Report Type: 
  Country: None (occurrence: None)
  Receive Date: 20100707
  Receipt Date: 20090313
  Transmission Date: 20110219
  Serious: No
  Sender: FDA-Public Use
  Company Number: US-PFIZER INC-2009168822

PATIENT
  Sex: Female
  Weight: 47 kg

DRUGS (4)
  1. ZOLOFT [Suspect]
     Indication: DEPRESSION
     Dosage: 25 MG, 1X/DAY
  2. ZOLOFT [Suspect]
     Indication: NERVOUSNESS
  3. SERTRALINE HCL [Suspect]
     Indication: DEPRESSION
     Dosage: UNK
     Dates: start: 20081101
  4. AMITRIPTYLINE [Concomitant]
     Dosage: UNK

REACTIONS (4)
  - ANXIETY [None]
  - BLOOD CHOLESTEROL INCREASED [None]
  - DEPRESSION [None]
  - DRUG INEFFECTIVE [None]
